FAERS Safety Report 4388564-8 (Version None)
Quarter: 2004Q2

REPORT INFORMATION
  Report Type: 
  Country: None (occurrence: None)
  Receive Date: 20040624
  Receipt Date: 20040614
  Transmission Date: 20050107
  Serious: Yes (Other)
  Sender: FDA-Public Use
  Company Number: 200410396BCA

PATIENT
  Age: 18 Year
  Sex: Female

DRUGS (1)
  1. GAMUNEX [Suspect]
     Indication: CHRONIC INFLAMMATORY DEMYELINATING POLYRADICULONEUROPATHY
     Dosage: 35 G, INTRAVENOUS
     Route: 042
     Dates: start: 20040513

REACTIONS (4)
  - COUGH [None]
  - DYSPNOEA [None]
  - TACHYCARDIA [None]
  - WHEEZING [None]
